FAERS Safety Report 9985060 (Version 1)
Quarter: 2014Q1

REPORT INFORMATION
  Report Type: Report from Study
  Country: US (occurrence: US)
  Receive Date: 20140307
  Receipt Date: 20140307
  Transmission Date: 20141002
  Serious: No
  Sender: FDA-Public Use
  Company Number: US-ABBVIE-13P-163-1184636-00

PATIENT
  Age: 38 Year
  Sex: Male

DRUGS (14)
  1. HUMIRA [Suspect]
     Indication: COLITIS ULCERATIVE
     Dates: start: 20131028, end: 20131028
  2. HUMIRA [Suspect]
     Dates: start: 20131111, end: 20131111
  3. HUMIRA [Suspect]
     Dates: start: 20131208
  4. HYDROCODONE/ACETAMINOPHEN [Concomitant]
     Indication: PAIN
     Dosage: 10/325 MG UP TO THREE DAILY
  5. FLONASE [Concomitant]
     Indication: PRODUCT USED FOR UNKNOWN INDICATION
     Dosage: 1 SPRAY BID
  6. PROBIOTICS [Concomitant]
     Indication: PRODUCT USED FOR UNKNOWN INDICATION
  7. ESTER C [Concomitant]
     Indication: PRODUCT USED FOR UNKNOWN INDICATION
  8. MULTIVITAMIN [Concomitant]
     Indication: PRODUCT USED FOR UNKNOWN INDICATION
  9. DRISTAN [Concomitant]
     Indication: SINUS HEADACHE
  10. ZYRTEC-D [Concomitant]
     Indication: PRODUCT USED FOR UNKNOWN INDICATION
  11. RAYOS [Concomitant]
     Indication: PRODUCT USED FOR UNKNOWN INDICATION
  12. LIALDA [Concomitant]
     Indication: PRODUCT USED FOR UNKNOWN INDICATION
     Dates: end: 201312
  13. LIALDA [Concomitant]
     Dates: start: 201312
  14. IMURAN [Concomitant]
     Indication: PRODUCT USED FOR UNKNOWN INDICATION
     Dates: end: 201312

REACTIONS (4)
  - Megacolon [Unknown]
  - Rhinorrhoea [Unknown]
  - Abdominal distension [Recovering/Resolving]
  - Colitis ulcerative [Recovering/Resolving]
